FAERS Safety Report 15713000 (Version 2)
Quarter: 2018Q4

REPORT INFORMATION
  Report Type: Spontaneous
  Country: JP (occurrence: JP)
  Receive Date: 20181212
  Receipt Date: 20181219
  Transmission Date: 20190205
  Serious: No
  Sender: FDA-Public Use
  Company Number: JP-ELI_LILLY_AND_COMPANY-JP201812002816

PATIENT
  Age: 75 Year
  Sex: Male

DRUGS (11)
  1. LOSARTAN K [Concomitant]
     Active Substance: LOSARTAN POTASSIUM
  2. ZOLPIDEM [Concomitant]
     Active Substance: ZOLPIDEM\ZOLPIDEM TARTRATE
  3. BRONUCK [Concomitant]
     Active Substance: BROMFENAC SODIUM
     Route: 047
  4. KALLIDINOGENASE [Concomitant]
     Active Substance: KALLIDINOGENASE
  5. PITAVASTATIN. [Concomitant]
     Active Substance: PITAVASTATIN CALCIUM
  6. CARBAZOCHROME [Concomitant]
     Active Substance: CARBAZOCHROME
  7. AZOPT [Concomitant]
     Active Substance: BRINZOLAMIDE
     Route: 047
  8. HYALEIN [Concomitant]
     Active Substance: HYALURONATE SODIUM
     Route: 047
  9. TRAVATAN Z [Concomitant]
     Active Substance: TRAVOPROST
     Route: 047
  10. ZALUTIA [Suspect]
     Active Substance: TADALAFIL
     Indication: BENIGN PROSTATIC HYPERPLASIA
     Dosage: UNK
     Route: 048
     Dates: start: 20181009
  11. EQUA [Concomitant]
     Active Substance: VILDAGLIPTIN

REACTIONS (1)
  - Vision blurred [Unknown]

NARRATIVE: CASE EVENT DATE: 20181205
